FAERS Safety Report 5277394-0 (Version None)
Quarter: 2007Q1

REPORT INFORMATION
  Report Type: 
  Country: None (occurrence: None)
  Receive Date: 20061213
  Receipt Date: 20060720
  Transmission Date: 20070707
  Serious: No
  Sender: FDA-Public Use
  Company Number: 2006UW14882

PATIENT
  Age: 13 Year
  Sex: Female

DRUGS (3)
  1. SEROQUEL [Suspect]
     Dosage: 450 MG DAILY
  2. SEROQUEL [Suspect]
     Dosage: 200 MG DAILY
     Dates: start: 20060720
  3. WELLBUTRIN [Concomitant]

REACTIONS (1)
  - TACHYCARDIA [None]
